FAERS Safety Report 7191856-0 (Version None)
Quarter: 2010Q4

REPORT INFORMATION
  Report Type: 
  Country: None (occurrence: None)
  Receive Date: 20101223
  Receipt Date: 20101214
  Transmission Date: 20110411
  Serious: Yes (Other)
  Sender: FDA-Public Use
  Company Number: JP-PFIZER INC-2010163912

PATIENT
  Age: 89 Year
  Sex: Female
  Weight: 36 kg

DRUGS (10)
  1. CELECOX [Suspect]
     Indication: OSTEOARTHRITIS
     Dosage: 200MG, UNKNOWN/D
     Route: 048
     Dates: start: 20100926, end: 20101120
  2. CRAVIT [Suspect]
     Indication: ENTEROCOLITIS INFECTIOUS
     Dosage: 500 MG, 1X/DAY
     Route: 048
     Dates: start: 20101116, end: 20101120
  3. CRAVIT [Suspect]
     Indication: ENTERITIS INFECTIOUS
  4. NORVASC [Concomitant]
     Dosage: UNK
     Dates: start: 20101109, end: 20101120
  5. BLOPRESS [Concomitant]
     Dosage: UNK
     Dates: start: 20101109, end: 20101120
  6. LIVALO [Concomitant]
     Dosage: UNK
     Dates: start: 20101109, end: 20101120
  7. METHYCOBAL [Concomitant]
     Dosage: UNK
     Dates: end: 20101120
  8. PLETAL [Concomitant]
     Dosage: UNK
     Dates: end: 20101120
  9. LENDORMIN [Concomitant]
     Dosage: UNK
     Dates: start: 20100923, end: 20101120
  10. PAXIL [Concomitant]
     Dosage: UNK
     Dates: start: 20101119, end: 20101119

REACTIONS (4)
  - CONFUSIONAL STATE [None]
  - CONVULSION [None]
  - DIARRHOEA [None]
  - HALLUCINATION, AUDITORY [None]
